FAERS Safety Report 6395534-7 (Version None)
Quarter: 2009Q4

REPORT INFORMATION
  Report Type: 
  Country: None (occurrence: None)
  Receive Date: 20091007
  Receipt Date: 20090218
  Transmission Date: 20100525
  Serious: Yes (Death, Hospitalization)
  Sender: FDA-Public Use
  Company Number: WAES 0808USA01283

PATIENT
  Age: 65 Year
  Sex: Male
  Weight: 93.8946 kg

DRUGS (52)
  1. CAP VORINOSTAT UNK [Suspect]
     Indication: ACUTE MYELOID LEUKAEMIA
     Dosage: 400 MG/DAILY/PO ; 400 MG/DAILY/PO ; 400 MG/DAILY/PO
     Route: 048
     Dates: start: 20080710, end: 20080723
  2. CAP VORINOSTAT UNK [Suspect]
     Indication: ACUTE MYELOID LEUKAEMIA
     Dosage: 400 MG/DAILY/PO ; 400 MG/DAILY/PO ; 400 MG/DAILY/PO
     Route: 048
     Dates: start: 20080827, end: 20080909
  3. CAP VORINOSTAT UNK [Suspect]
     Indication: ACUTE MYELOID LEUKAEMIA
     Dosage: 400 MG/DAILY/PO ; 400 MG/DAILY/PO ; 400 MG/DAILY/PO
     Route: 048
     Dates: start: 20081001, end: 20081014
  4. DECITABINE UNK [Suspect]
     Indication: ACUTE MYELOID LEUKAEMIA
     Dosage: 44 MG/DAILY/IV ; 42 MG/DAILY/IV ; 42 MG/DAILY/IV
     Route: 042
     Dates: start: 20080710, end: 20080714
  5. DECITABINE UNK [Suspect]
     Indication: ACUTE MYELOID LEUKAEMIA
     Dosage: 44 MG/DAILY/IV ; 42 MG/DAILY/IV ; 42 MG/DAILY/IV
     Route: 042
     Dates: start: 20080827, end: 20080831
  6. DECITABINE UNK [Suspect]
     Indication: ACUTE MYELOID LEUKAEMIA
     Dosage: 44 MG/DAILY/IV ; 42 MG/DAILY/IV ; 42 MG/DAILY/IV
     Route: 042
     Dates: start: 20081001, end: 20081005
  7. ABELCET [Concomitant]
  8. ALLEGRA [Concomitant]
  9. ANCEF [Concomitant]
  10. BIOTENE [Concomitant]
  11. COLACE [Concomitant]
  12. DEMEROL [Concomitant]
  13. FLOMAX (MORNIFLUMATE) [Concomitant]
  14. FORTAZ [Concomitant]
  15. MAALOX [Concomitant]
  16. OCEAN [Concomitant]
  17. PHOSLO [Concomitant]
  18. PROTONIX [Concomitant]
  19. SENOKOT [Concomitant]
  20. SILVADENE [Concomitant]
  21. ULTRAM [Concomitant]
  22. ZOFRAN [Concomitant]
  23. ACETAMINOPHEN [Concomitant]
  24. ACETAZOLAMIDE [Concomitant]
  25. ACYCLOVIR [Concomitant]
  26. ALLOPURINOL [Concomitant]
  27. AMINO ACIDS [Concomitant]
  28. AMLODIPINE [Concomitant]
  29. AZTREONAM [Concomitant]
  30. CLOTRIMAZOLE [Concomitant]
  31. DEXAMETHASONE 0.5MG TAB [Concomitant]
  32. DEXTROSE [Concomitant]
  33. DILTIAZEM HYDROCHLORIDE [Concomitant]
  34. DIPHENHYDRAMINE HYDROCHLORIDE [Concomitant]
  35. FAT [Concomitant]
  36. FOLIC ACID [Concomitant]
  37. GENTAMICIN [Concomitant]
  38. IMIPENEM [Concomitant]
  39. LEVOFLOXACIN [Concomitant]
  40. LIDOCAINE (+) SODIUM BICARBONATE [Concomitant]
  41. LISINOPRIL [Concomitant]
  42. LORAZEPAM [Concomitant]
  43. METOPROLOL [Concomitant]
  44. METRONIDAZOLE [Concomitant]
  45. MICAFUNGIN [Concomitant]
  46. MORPHINE [Concomitant]
  47. POTASSIUM CHLORIDE [Concomitant]
  48. PSEUDOEPHEDRINE HCL [Concomitant]
  49. SPIRONOLACTONE [Concomitant]
  50. TIGECYCLINE [Concomitant]
  51. URSODIOL [Concomitant]
  52. VORICONAZOLE [Concomitant]

REACTIONS (24)
  - AGITATION [None]
  - BACTERIAL INFECTION [None]
  - BLOOD CULTURE POSITIVE [None]
  - CONFUSIONAL STATE [None]
  - DIARRHOEA [None]
  - ENTEROCOCCAL INFECTION [None]
  - ESCHERICHIA BACTERAEMIA [None]
  - EYE INFECTION [None]
  - HEPATOSPLENOMEGALY [None]
  - HYPOMAGNESAEMIA [None]
  - HYPOTENSION [None]
  - INSOMNIA [None]
  - KLEBSIELLA INFECTION [None]
  - MUCOSAL INFLAMMATION [None]
  - NAUSEA [None]
  - PNEUMONIA [None]
  - PROCTALGIA [None]
  - PSEUDOMONAL BACTERAEMIA [None]
  - PYREXIA [None]
  - RASH [None]
  - RESPIRATORY DISTRESS [None]
  - RESPIRATORY FAILURE [None]
  - STAPHYLOCOCCAL INFECTION [None]
  - URINARY HESITATION [None]
